FAERS Safety Report 9719230 (Version 2)
Quarter: 2013Q4

REPORT INFORMATION
  Report Type: Spontaneous
  Country: SE (occurrence: SE)
  Receive Date: 20131127
  Receipt Date: 20131127
  Transmission Date: 20140711
  Serious: Yes (Other)
  Sender: FDA-Public Use
  Company Number: PHHY2013SE103256

PATIENT
  Age: 33 Year
  Sex: Female

DRUGS (5)
  1. SIGNIFOR [Suspect]
     Indication: PITUITARY-DEPENDENT CUSHING^S SYNDROME
     Dosage: 0.6 UG, BID
     Route: 058
  2. SIGNIFOR [Suspect]
     Dosage: 0.3 UG, QD
     Route: 058
     Dates: start: 201211, end: 20130701
  3. L-THYROXINE [Concomitant]
     Indication: HYPOTHYROIDISM
     Dosage: 100 MG, UNK
     Route: 048
  4. B12//CYANOCOBALAMIN [Concomitant]
     Dosage: 1 MG, UNK
     Route: 048
  5. TRYPTIZOL [Concomitant]
     Indication: DEPRESSION
     Dosage: 30 MG, UNK
     Route: 048

REACTIONS (5)
  - Tremor [Recovered/Resolved]
  - Palpitations [Recovered/Resolved]
  - Dizziness [Recovered/Resolved]
  - Nausea [Recovered/Resolved]
  - Fatigue [Recovered/Resolved]
